FAERS Safety Report 11800898 (Version 1)
Quarter: 2015Q4

REPORT INFORMATION
  Report Type: Report from Study
  Country: US (occurrence: US)
  Receive Date: 20151204
  Receipt Date: 20151204
  Transmission Date: 20160305
  Serious: Yes (Hospitalization)
  Sender: FDA-Public Use
  Company Number: US-ROCHE-1667821

PATIENT
  Age: 47 Year
  Sex: Female

DRUGS (3)
  1. PACLITAXEL. [Suspect]
     Active Substance: PACLITAXEL
     Indication: FALLOPIAN TUBE CANCER
     Route: 042
     Dates: start: 20101118
  2. CARBOPLATIN. [Suspect]
     Active Substance: CARBOPLATIN
     Indication: FALLOPIAN TUBE CANCER
     Dosage: AUC - 6 IV ON DAY 1(CYCLES 1-6)
     Route: 042
     Dates: start: 20101118
  3. BEVACIZUMAB [Suspect]
     Active Substance: BEVACIZUMAB
     Indication: FALLOPIAN TUBE CANCER
     Dosage: DATE OF LAST DOSE OF BEVACIZUMAB PRIOR TO ADVERSE EVENT: 09/DEC/2010.
     Route: 042
     Dates: start: 20101118

REACTIONS (4)
  - Haematoma [Unknown]
  - Musculoskeletal chest pain [Unknown]
  - Anaemia [Unknown]
  - Dysphagia [Unknown]

NARRATIVE: CASE EVENT DATE: 20101221
